FAERS Safety Report 25230062 (Version 1)
Quarter: 2025Q2

REPORT INFORMATION
  Report Type: Spontaneous
  Country: US (occurrence: None)
  Receive Date: 20250422
  Receipt Date: 20250422
  Transmission Date: 20250716
  Serious: No
  Sender: FDA-CTU
  Company Number: None

PATIENT
  Age: 51 Year
  Sex: Female
  Weight: 99 kg

DRUGS (1)
  1. DAPTOMYCIN [Suspect]
     Active Substance: DAPTOMYCIN
     Indication: Device related infection
     Dosage: FREQUENCY : DAILY;?
     Route: 042
     Dates: start: 20250407, end: 20250422

REACTIONS (3)
  - Eosinophil count increased [None]
  - Cough [None]
  - Eosinophilic pneumonia [None]

NARRATIVE: CASE EVENT DATE: 20250422
